FAERS Safety Report 19905948 (Version 1)
Quarter: 2021Q3

REPORT INFORMATION
  Report Type: Spontaneous
  Country: US (occurrence: US)
  Receive Date: 20210930
  Receipt Date: 20210930
  Transmission Date: 20211014
  Serious: No
  Sender: FDA-Public Use
  Company Number: None

PATIENT
  Sex: Female

DRUGS (1)
  1. TALZENNA [Suspect]
     Active Substance: TALAZOPARIB TOSYLATE
     Indication: BREAST CANCER
     Dosage: ?          OTHER DOSE:SEE EVENT;?
     Route: 048
     Dates: start: 20210518

REACTIONS (6)
  - Dyspnoea [None]
  - Balance disorder [None]
  - Headache [None]
  - Gait inability [None]
  - Dizziness [None]
  - Haemoglobin decreased [None]
